FAERS Safety Report 9363434 (Version 2)
Quarter: 2013Q2

REPORT INFORMATION
  Report Type: Spontaneous
  Country: IT (occurrence: IT)
  Receive Date: 20130624
  Receipt Date: 20130625
  Transmission Date: 20140414
  Serious: Yes (Other)
  Sender: FDA-Public Use
  Company Number: IT-JNJFOC-20130610141

PATIENT
  Sex: Female

DRUGS (7)
  1. DOXORUBICIN HYDROCHLORIDE [Suspect]
     Indication: BREAST CANCER
     Dosage: ON DAY 1 REPEATED EVERY 21 DAYS
     Route: 042
  2. DOXORUBICIN HYDROCHLORIDE [Suspect]
     Indication: BREAST CANCER
     Dosage: ON DAY 1 REPEATED EVERY 21 DAYS
     Route: 042
  3. CYCLOPHOSPHAMIDE [Suspect]
     Indication: BREAST CANCER
     Dosage: ON DAY 1 REPEATED EVERY 21 DAYS
     Route: 042
  4. DOCETAXEL [Suspect]
     Indication: BREAST CANCER
     Dosage: ON DAY 1 REPEATED EVERY 21 DAYS
     Route: 042
  5. PREDNISONE [Concomitant]
     Indication: PROPHYLAXIS
     Dosage: ON DAY 1 AND 1 OF EACH COURSE
     Route: 048
  6. CETIRIZINE [Concomitant]
     Indication: PROPHYLAXIS
     Dosage: ON DAY 1 AND 1 OF EACH COURSE
     Route: 048
  7. G-CSF [Concomitant]
     Indication: PROPHYLAXIS
     Dosage: ON DAY 1 AND 1 OF EACH COURSE
     Route: 065

REACTIONS (1)
  - Hepatotoxicity [Unknown]
